FAERS Safety Report 9831233 (Version 1)
Quarter: 2014Q1

REPORT INFORMATION
  Report Type: Spontaneous
  Country: US (occurrence: US)
  Receive Date: 20140121
  Receipt Date: 20140121
  Transmission Date: 20141002
  Serious: Yes (Death)
  Sender: FDA-Public Use
  Company Number: US-JNJFOC-20140106282

PATIENT
  Age: 31 Year
  Sex: Male

DRUGS (4)
  1. ACETYLSALICYLIC ACID [Suspect]
     Indication: SUICIDE ATTEMPT
     Route: 065
  2. FLUOXETINE [Suspect]
     Indication: SUICIDE ATTEMPT
     Route: 065
  3. OLANZAPINE [Suspect]
     Indication: SUICIDE ATTEMPT
     Route: 048
  4. LURASIDONE [Suspect]
     Indication: SUICIDE ATTEMPT
     Route: 065

REACTIONS (1)
  - Toxicity to various agents [Fatal]
